FAERS Safety Report 16939310 (Version 1)
Quarter: 2019Q4

REPORT INFORMATION
  Report Type: Spontaneous
  Country: US (occurrence: US)
  Receive Date: 20191021
  Receipt Date: 20191021
  Transmission Date: 20200122
  Serious: No
  Sender: FDA-Public Use
  Company Number: US-JNJFOC-20191024963

PATIENT
  Sex: Female

DRUGS (1)
  1. WOMENS ROGAINE UNSCENTED [Suspect]
     Active Substance: MINOXIDIL
     Indication: ALOPECIA
     Dosage: SIZE OF A QUARTER ONCE A DAY.?THE LAST ADMINISTERED DATE OF PRODUCT USE IS 09/OCT/2019.
     Route: 061
     Dates: start: 20190716

REACTIONS (1)
  - Incorrect dose administered [Unknown]
